FAERS Safety Report 23561306 (Version 1)
Quarter: 2024Q1

REPORT INFORMATION
  Report Type: Spontaneous
  Country: US (occurrence: US)
  Receive Date: 20240224
  Receipt Date: 20240224
  Transmission Date: 20240410
  Serious: No
  Sender: FDA-Public Use
  Company Number: US-002147023-NVSC2023US201968

PATIENT
  Sex: Female

DRUGS (8)
  1. CICLOPIROX OLAMINE [Suspect]
     Active Substance: CICLOPIROX OLAMINE
     Indication: Psoriasis
     Dosage: UNK
     Route: 065
  2. CICLOPIROX OLAMINE [Suspect]
     Active Substance: CICLOPIROX OLAMINE
     Indication: Intertrigo
  3. COSENTYX [Suspect]
     Active Substance: SECUKINUMAB
     Indication: Psoriasis
     Dosage: UNK; INJECTION NOT OTHERWISE SPECIFIED
     Route: 065
  4. MOMETASONE [Suspect]
     Active Substance: MOMETASONE
     Indication: Psoriasis
     Dosage: UNK
     Route: 065
  5. MOMETASONE [Suspect]
     Active Substance: MOMETASONE
     Indication: Intertrigo
  6. NYSTATIN [Suspect]
     Active Substance: NYSTATIN
     Indication: Product used for unknown indication
     Route: 065
  7. TRIAMCINOLONE [Suspect]
     Active Substance: TRIAMCINOLONE
     Indication: Psoriasis
     Dosage: UNK
     Route: 065
  8. TRIAMCINOLONE [Suspect]
     Active Substance: TRIAMCINOLONE
     Indication: Intertrigo

REACTIONS (12)
  - Psoriasis [Recovered/Resolved]
  - Pruritus [Recovered/Resolved]
  - Skin exfoliation [Recovered/Resolved]
  - Papule [Recovered/Resolved]
  - Skin plaque [Recovered/Resolved]
  - Erythema [Recovered/Resolved]
  - Rhinorrhoea [Recovered/Resolved]
  - Nasal congestion [Recovered/Resolved]
  - Arthralgia [Recovered/Resolved]
  - Rash [Recovered/Resolved]
  - Oropharyngeal pain [Recovered/Resolved]
  - Therapeutic product effect incomplete [Unknown]
